FAERS Safety Report 10347868 (Version 8)
Quarter: 2014Q4

REPORT INFORMATION
  Report Type: Spontaneous
  Country: US (occurrence: None)
  Receive Date: 20140725
  Receipt Date: 20141105
  Transmission Date: 20150528
  Serious: Yes (Other)
  Sender: FDA-Public Use
  Company Number: UNT-2014-003608

PATIENT
  Age: 48 Year
  Sex: Male
  Weight: 68.5 kg

DRUGS (8)
  1. FERROUS SULFATE [Concomitant]
     Active Substance: FERROUS SULFATE\FERROUS SULFATE, DRIED
  2. ALBUTEROL (SALBUTAMOL) [Concomitant]
     Active Substance: ALBUTEROL
  3. REMODULIN [Suspect]
     Active Substance: TREPROSTINIL
     Indication: PULMONARY ARTERIAL HYPERTENSION
     Route: 058
     Dates: start: 20140620
  4. LIPITOR [Concomitant]
     Active Substance: ATORVASTATIN CALCIUM
  5. ALPRAZOLAM (ALPRAZOLAM) [Concomitant]
     Active Substance: ALPRAZOLAM
  6. REVATIO [Concomitant]
     Active Substance: SILDENAFIL CITRATE
  7. MELATONIN (MELATONIN) [Concomitant]
     Active Substance: MELATONIN
  8. SYMBICORT [Concomitant]
     Active Substance: BUDESONIDE\FORMOTEROL FUMARATE DIHYDRATE

REACTIONS (18)
  - Chest pain [None]
  - Dizziness [None]
  - Poisoning [None]
  - Condition aggravated [None]
  - Confusional state [None]
  - Weight decreased [None]
  - Gastrointestinal haemorrhage [None]
  - Faeces discoloured [None]
  - Dehydration [None]
  - Palpitations [None]
  - Disorientation [None]
  - Diarrhoea [None]
  - Device dislocation [None]
  - Pulmonary hypertension [None]
  - Medical device complication [None]
  - Memory impairment [None]
  - Hepatic cirrhosis [None]
  - Drug dose omission [None]

NARRATIVE: CASE EVENT DATE: 2014
